FAERS Safety Report 9768548 (Version 1)
Quarter: 2013Q4

REPORT INFORMATION
  Report Type: Spontaneous
  Country: GB (occurrence: GB)
  Receive Date: 20131217
  Receipt Date: 20131217
  Transmission Date: 20140711
  Serious: Yes (Hospitalization, Disabling)
  Sender: FDA-Public Use
  Company Number: GB-009507513-1312GBR006003

PATIENT
  Age: 83 Year
  Sex: Female
  Weight: 75 kg

DRUGS (8)
  1. ALENDRONATE SODIUM [Suspect]
     Indication: OSTEOARTHRITIS
     Dosage: 70 MG, QW
     Route: 048
     Dates: end: 20131031
  2. ASPIRIN [Concomitant]
     Dosage: 75 MG, QD
  3. CALCICHEW D3 [Concomitant]
  4. ACETAMINOPHEN (+) CODEINE PHOSPHATE [Concomitant]
     Dosage: 2 DF, QID
  5. BUPROFEN [Concomitant]
     Route: 061
  6. OMEPRAZOLE [Concomitant]
     Dosage: 40 MG, QD
     Route: 048
  7. RAMIPRIL [Concomitant]
     Dosage: 1.25 MG, QD
  8. SIMVASTATIN [Concomitant]
     Dosage: 40 MG, QD
     Route: 048

REACTIONS (1)
  - Atypical fracture [Recovered/Resolved with Sequelae]
